FAERS Safety Report 7381341-5 (Version None)
Quarter: 2011Q1

REPORT INFORMATION
  Report Type: 
  Country: None (occurrence: None)
  Receive Date: 20110323
  Receipt Date: 20110323
  Transmission Date: 20110831
  Serious: Yes (Hospitalization)
  Sender: FDA-Public Use
  Company Number: None

PATIENT
  Age: 37 Year
  Sex: Male
  Weight: 128 kg

DRUGS (1)
  1. SARGRAMOSTIM [Suspect]
     Dates: start: 20101104, end: 20101105

REACTIONS (6)
  - HYPOTENSION [None]
  - DYSPNOEA [None]
  - DYSKINESIA [None]
  - HYPERHIDROSIS [None]
  - SYNCOPE [None]
  - HOT FLUSH [None]
